FAERS Safety Report 17294194 (Version 1)
Quarter: 2020Q1

REPORT INFORMATION
  Report Type: Spontaneous
  Country: US (occurrence: US)
  Receive Date: 20200120
  Receipt Date: 20200120
  Transmission Date: 20200409
  Serious: No
  Sender: FDA-Public Use
  Company Number: None

PATIENT
  Age: 53 Year
  Sex: Female
  Weight: 54 kg

DRUGS (1)
  1. DULOXETINE 20MG [Suspect]
     Active Substance: DULOXETINE
     Indication: MAJOR DEPRESSION
     Dosage: ?          QUANTITY:1 CAPSULE(S);?
     Route: 048
     Dates: start: 20110501, end: 20200103

REACTIONS (4)
  - Dyspnoea [None]
  - Hot flush [None]
  - Dizziness [None]
  - Withdrawal syndrome [None]

NARRATIVE: CASE EVENT DATE: 20200103
